FAERS Safety Report 7888103-0 (Version None)
Quarter: 2011Q4

REPORT INFORMATION
  Report Type: 
  Country: None (occurrence: None)
  Receive Date: 20111103
  Receipt Date: 20111024
  Transmission Date: 20120403
  Serious: Yes (Other)
  Sender: FDA-Public Use
  Company Number: GR-BRISTOL-MYERS SQUIBB COMPANY-16161119

PATIENT
  Age: 74 Year
  Sex: Female

DRUGS (2)
  1. DEPON [Concomitant]
     Indication: MUSCULOSKELETAL PAIN
  2. PRAVACHOL [Suspect]
     Indication: HYPERCHOLESTEROLAEMIA
     Dosage: DRUG INTERRUPTED AND RESTARTED
     Route: 048
     Dates: start: 20070101

REACTIONS (2)
  - TENDON RUPTURE [None]
  - MUSCULOSKELETAL PAIN [None]
